FAERS Safety Report 11565654 (Version 1)
Quarter: 2015Q3

REPORT INFORMATION
  Report Type: Spontaneous
  Country: US (occurrence: US)
  Receive Date: 20150928
  Receipt Date: 20150928
  Transmission Date: 20151125
  Serious: No
  Sender: FDA-Public Use
  Company Number: US-OTSUKA-US-2014-13115

PATIENT

DRUGS (1)
  1. ABILIFY MAINTENA [Suspect]
     Active Substance: ARIPIPRAZOLE
     Indication: PRODUCT USED FOR UNKNOWN INDICATION
     Dosage: 400 MG, QM
     Route: 030
     Dates: start: 20140918

REACTIONS (8)
  - Pyrexia [Unknown]
  - Arthralgia [Unknown]
  - Emotional disorder [Unknown]
  - Inappropriate schedule of drug administration [Unknown]
  - Fatigue [Unknown]
  - Nasopharyngitis [Unknown]
  - Depression [Unknown]
  - Secretion discharge [Unknown]

NARRATIVE: CASE EVENT DATE: 20150422
